FAERS Safety Report 14517300 (Version 3)
Quarter: 2018Q1

REPORT INFORMATION
  Report Type: Spontaneous
  Country: JP (occurrence: JP)
  Receive Date: 20180212
  Receipt Date: 20180327
  Transmission Date: 20180509
  Serious: Yes (Hospitalization, Other)
  Sender: FDA-Public Use
  Company Number: JP-CONCORDIA PHARMACEUTICALS INC.-GSH201802-000530

PATIENT
  Age: 28 Year
  Sex: Male

DRUGS (1)
  1. PLAQUENIL [Suspect]
     Active Substance: HYDROXYCHLOROQUINE SULFATE
     Indication: SYSTEMIC LUPUS ERYTHEMATOSUS
     Route: 048
     Dates: start: 201712, end: 20180201

REACTIONS (2)
  - Iridocyclitis [Unknown]
  - Vogt-Koyanagi-Harada syndrome [Recovering/Resolving]

NARRATIVE: CASE EVENT DATE: 20180123
